FAERS Safety Report 19879829 (Version 1)
Quarter: 2021Q3

REPORT INFORMATION
  Report Type: Spontaneous
  Country: CA (occurrence: CA)
  Receive Date: 20210924
  Receipt Date: 20210924
  Transmission Date: 20211014
  Serious: Yes (Death)
  Sender: FDA-Public Use
  Company Number: CA-TEVA-2021-CA-1956211

PATIENT
  Age: 31 Year
  Sex: Female
  Weight: 74 kg

DRUGS (4)
  1. ECSTASY [Suspect]
     Active Substance: MIDOMAFETAMINE
     Route: 065
  2. COCAINE [Suspect]
     Active Substance: COCAINE
     Route: 065
  3. FENTANYL. [Suspect]
     Active Substance: FENTANYL
     Route: 065
  4. HEROIN [Concomitant]
     Active Substance: DIAMORPHINE

REACTIONS (5)
  - Postmortem blood drug level increased [Fatal]
  - Antemortem blood drug level increased [Fatal]
  - Toxicity to various agents [Fatal]
  - Opiates positive [Fatal]
  - Fall [Fatal]
